FAERS Safety Report 8271396-8 (Version None)
Quarter: 2012Q2

REPORT INFORMATION
  Report Type: 
  Country: None (occurrence: None)
  Receive Date: 20120410
  Receipt Date: 20120402
  Transmission Date: 20120825
  Serious: Yes (Hospitalization)
  Sender: FDA-Public Use
  Company Number: PHHY2012FR028863

PATIENT
  Sex: Male

DRUGS (1)
  1. AFINITOR [Suspect]
     Indication: RENAL CANCER STAGE III
     Dates: start: 20110901, end: 20111001

REACTIONS (3)
  - RASH [None]
  - PYREXIA [None]
  - ASCITES [None]
